FAERS Safety Report 6110156-0 (Version None)
Quarter: 2009Q1

REPORT INFORMATION
  Report Type: 
  Country: None (occurrence: None)
  Receive Date: 20090306
  Receipt Date: 20090306
  Transmission Date: 20090719
  Serious: Yes (Hospitalization)
  Sender: FDA-Public Use
  Company Number: None

PATIENT
  Sex: Male
  Weight: 71.6683 kg

DRUGS (1)
  1. LISINOPRIL [Suspect]
     Indication: HYPERTENSION
     Dosage: 10 MG 1 X DAILY PO
     Route: 048
     Dates: start: 20090226, end: 20090304

REACTIONS (2)
  - DRUG HYPERSENSITIVITY [None]
  - DRUG INEFFECTIVE [None]
